FAERS Safety Report 22160099 (Version 5)
Quarter: 2024Q4

REPORT INFORMATION
  Report Type: Report from Study
  Country: US (occurrence: US)
  Receive Date: 20230331
  Receipt Date: 20241227
  Transmission Date: 20250114
  Serious: Yes (Other)
  Sender: ROCHE
  Company Number: US-ROCHE-3318412

PATIENT
  Age: 73 Year
  Sex: Male

DRUGS (2)
  1. ACTEMRA [Suspect]
     Active Substance: TOCILIZUMAB
     Indication: Giant cell arteritis
     Route: 058
     Dates: start: 20210428
  2. ACTEMRA [Suspect]
     Active Substance: TOCILIZUMAB
     Dosage: INJECT 0.9ML (162MG) SUBCUTANEOUSLY EVERY 7 DAY(S)
     Route: 058

REACTIONS (1)
  - Blindness [Unknown]
